FAERS Safety Report 25844304 (Version 1)
Quarter: 2025Q3

REPORT INFORMATION
  Report Type: Other
  Country: US (occurrence: US)
  Receive Date: 20250925
  Receipt Date: 20250925
  Transmission Date: 20251021
  Serious: Yes (Other)
  Sender: ESJAY PHARMA
  Company Number: US-ESJAY PHARMA-001013

PATIENT
  Age: 70 Year
  Sex: Female

DRUGS (2)
  1. FUROSEMIDE [Suspect]
     Active Substance: FUROSEMIDE
     Indication: Diuretic therapy
  2. LISINOPRIL [Concomitant]
     Active Substance: LISINOPRIL
     Indication: Hypotension

REACTIONS (1)
  - Acute kidney injury [Recovering/Resolving]
